FAERS Safety Report 18303154 (Version 4)
Quarter: 2020Q4

REPORT INFORMATION
  Report Type: Report from Study
  Country: JP (occurrence: JP)
  Receive Date: 20200923
  Receipt Date: 20201030
  Transmission Date: 20210113
  Serious: Yes (Death, Life-Threatening)
  Sender: FDA-Public Use
  Company Number: JP-PFIZER INC-2020329026

PATIENT
  Age: 56 Year
  Sex: Female
  Weight: 51.5 kg

DRUGS (5)
  1. LORLATINIB [Suspect]
     Active Substance: LORLATINIB
     Indication: NON-SMALL CELL LUNG CANCER
     Dosage: 100 MG, 1X/DAY
     Route: 048
     Dates: start: 20190208, end: 20190212
  2. LORLATINIB [Suspect]
     Active Substance: LORLATINIB
     Dosage: 50 MG, 1X/DAY
     Route: 048
     Dates: start: 20190214, end: 20190219
  3. RINDERON [BETAMETHASONE] [Concomitant]
     Active Substance: BETAMETHASONE
     Indication: CACHEXIA
     Dosage: 2 MG, 1X/DAY
     Route: 041
     Dates: start: 20190124, end: 20190210
  4. MEROPENEM. [Concomitant]
     Active Substance: MEROPENEM
     Indication: MENINGITIS BACTERIAL
     Dosage: 0.5 G, 2X/DAY
     Route: 041
     Dates: start: 20190124, end: 20190225
  5. LORLATINIB [Suspect]
     Active Substance: LORLATINIB
     Dosage: 75 MG, 1X/DAY
     Route: 048
     Dates: start: 20190213, end: 20190213

REACTIONS (4)
  - Platelet count decreased [Recovered/Resolved]
  - Pneumocystis jirovecii pneumonia [Fatal]
  - Neoplasm progression [Not Recovered/Not Resolved]
  - Pneumonitis [Fatal]

NARRATIVE: CASE EVENT DATE: 20190212
